FAERS Safety Report 4268592-3 (Version None)
Quarter: 2004Q1

REPORT INFORMATION
  Report Type: 
  Country: None (occurrence: None)
  Receive Date: 20040112
  Receipt Date: 20031210
  Transmission Date: 20041129
  Serious: Yes (Other)
  Sender: FDA-Public Use
  Company Number: AU-GLAXOSMITHKLINE-B0317735A

PATIENT
  Age: 27 Year
  Sex: Male

DRUGS (1)
  1. ZYBAN [Suspect]
     Route: 065
     Dates: end: 20031208

REACTIONS (8)
  - AMNESIA [None]
  - DIZZINESS [None]
  - FEELING ABNORMAL [None]
  - HYPERVENTILATION [None]
  - LOSS OF CONSCIOUSNESS [None]
  - NAUSEA [None]
  - PALLOR [None]
  - SALIVARY HYPERSECRETION [None]
